FAERS Safety Report 9514948 (Version 1)
Quarter: 2013Q1

REPORT INFORMATION
  Report Type: Spontaneous
  Country: US (occurrence: None)
  Receive Date: 20130305
  Receipt Date: 20130305
  Transmission Date: 20140127
  Serious: Yes (Other)
  Sender: FDA-Public Use
  Company Number: 163-21880-12122929

PATIENT
  Age: 73 Year
  Sex: Male
  Weight: 71.67 kg

DRUGS (11)
  1. REVLIMID [Suspect]
     Indication: PLASMA CELL MYELOMA
     Route: 048
     Dates: start: 20120223
  2. ACYCLOVIR (ACICLOVIR) (ACICLOVIR) [Concomitant]
  3. BABY ASPIRIN (ACETYLSALICYLIC ACID) [Concomitant]
  4. FENTANYL [Concomitant]
  5. FLOMAX (TAMSULOSIN HYDROCHLORIDE) [Concomitant]
  6. FRAGMIN (HEPARIN-FRACTION, SODIUM SALT) [Concomitant]
  7. GLIPIZIDE [Concomitant]
  8. LIPITOR (ATORVASTATIN) [Concomitant]
  9. METFORMIN HCL (METFORMIN HYDROCHLORIDE) [Concomitant]
  10. PRILOSEC [Concomitant]
  11. PROCHLORPERAZINE (PEROCHLORPERAZINE) [Concomitant]

REACTIONS (1)
  - Pulmonary thrombosis [None]
